FAERS Safety Report 4882423-X (Version None)
Quarter: 2006Q1

REPORT INFORMATION
  Report Type: 
  Country: None (occurrence: None)
  Receive Date: 20060113
  Receipt Date: 20041210
  Transmission Date: 20060701
  Serious: Yes (Hospitalization)
  Sender: FDA-Public Use
  Company Number: 2004108721

PATIENT
  Sex: Male
  Weight: 86.1834 kg

DRUGS (4)
  1. ROGAINE [Suspect]
     Indication: ALOPECIA
     Dosage: 1 ML BID, TOPICAL
     Route: 061
     Dates: start: 20000101, end: 20041201
  2. PREDNISONE TAB [Concomitant]
  3. DYAZIDE [Concomitant]
  4. FUROSEMIDE [Concomitant]

REACTIONS (10)
  - CHEST PAIN [None]
  - CONDITION AGGRAVATED [None]
  - DENTAL CARIES [None]
  - DIZZINESS [None]
  - LIBIDO DECREASED [None]
  - PRURITUS [None]
  - SKIN EXFOLIATION [None]
  - SKIN LESION EXCISION [None]
  - SWELLING [None]
  - WEIGHT INCREASED [None]
